FAERS Safety Report 19724477 (Version 5)
Quarter: 2025Q1

REPORT INFORMATION
  Report Type: Spontaneous
  Country: CA (occurrence: CA)
  Receive Date: 20210819
  Receipt Date: 20250123
  Transmission Date: 20250409
  Serious: Yes (Other)
  Sender: TAKEDA
  Company Number: CA-TAKEDA-2021TUS051562

PATIENT
  Age: 41 Year
  Sex: Male

DRUGS (8)
  1. MESALAMINE [Suspect]
     Active Substance: MESALAMINE
     Indication: Prophylaxis against transplant rejection
  2. PREDNISONE [Suspect]
     Active Substance: PREDNISONE
     Indication: Immunosuppressant drug therapy
  3. PREDNISONE [Suspect]
     Active Substance: PREDNISONE
     Indication: Immunosuppression
  4. TACROLIMUS [Suspect]
     Active Substance: TACROLIMUS
     Indication: Immunosuppressant drug therapy
  5. TACROLIMUS [Suspect]
     Active Substance: TACROLIMUS
     Indication: Immunosuppression
  6. URSODIOL [Suspect]
     Active Substance: URSODIOL
     Indication: Immunosuppressant drug therapy
  7. URSODIOL [Suspect]
     Active Substance: URSODIOL
     Indication: Prophylaxis against transplant rejection
  8. DASATINIB [Suspect]
     Active Substance: DASATINIB
     Indication: Chronic myeloid leukaemia
     Dosage: 50 MILLIGRAM, QD

REACTIONS (7)
  - Philadelphia positive chronic myeloid leukaemia [Recovered/Resolved]
  - Thrombocytopenia [Recovered/Resolved]
  - General physical health deterioration [Recovered/Resolved]
  - Loss of personal independence in daily activities [Recovered/Resolved]
  - Pain [Recovered/Resolved]
  - Product use in unapproved indication [Unknown]
  - Off label use [Unknown]
